FAERS Safety Report 11201734 (Version 2)
Quarter: 2015Q3

REPORT INFORMATION
  Report Type: Spontaneous
  Country: US (occurrence: None)
  Receive Date: 20150617
  Receipt Date: 20150723
  Transmission Date: 20151125
  Serious: Yes (Hospitalization, Other)
  Sender: FDA-Public Use
  Company Number: 2015-US-0160

PATIENT
  Age: 66 Year
  Sex: Female
  Weight: 62.6 kg

DRUGS (1)
  1. SANCUSO [Suspect]
     Active Substance: GRANISETRON
     Indication: PROPHYLAXIS OF NAUSEA AND VOMITING
     Dosage: 1  DOSAGE FORM X 1 PER 7 DAY TRANDERMAL
     Route: 062
     Dates: start: 20150604

REACTIONS (5)
  - Product adhesion issue [None]
  - Blood count abnormal [None]
  - Vomiting [None]
  - Nausea [None]
  - Therapeutic product ineffective [None]
